FAERS Safety Report 13519147 (Version 2)
Quarter: 2017Q3

REPORT INFORMATION
  Report Type: Spontaneous
  Country: US (occurrence: US)
  Receive Date: 20170505
  Receipt Date: 20170726
  Transmission Date: 20171127
  Serious: No
  Sender: FDA-Public Use
  Company Number: US-009507513-1705USA000970

PATIENT
  Age: 24 Year
  Sex: Female
  Weight: 85.26 kg

DRUGS (1)
  1. NEXPLANON [Suspect]
     Active Substance: ETONOGESTREL
     Dosage: 1 NEXPLANON ROD/ONCE EVERY 3 YEARS
     Route: 059
     Dates: start: 20170410, end: 20170510

REACTIONS (3)
  - Implant site pruritus [Recovered/Resolved]
  - Implant site irritation [Unknown]
  - Device deployment issue [Recovered/Resolved]

NARRATIVE: CASE EVENT DATE: 2017
